FAERS Safety Report 10199491 (Version 2)
Quarter: 2014Q2

REPORT INFORMATION
  Report Type: Spontaneous
  Country: US (occurrence: US)
  Receive Date: 20140527
  Receipt Date: 20140612
  Transmission Date: 20141212
  Serious: Yes (Death, Other)
  Sender: FDA-Public Use
  Company Number: US-CUBIST PHARMACEUTICAL, INC.-2014CBST000730

PATIENT
  Sex: 0

DRUGS (29)
  1. CUBICIN [Suspect]
     Indication: ABSCESS BACTERIAL
     Dosage: 4 MG/KG, Q24H
     Route: 042
     Dates: start: 20140401, end: 20140402
  2. CUBICIN [Suspect]
     Indication: OFF LABEL USE
     Dosage: UNK UNK, UNK
     Route: 065
     Dates: start: 20140402, end: 20140416
  3. CUBICIN [Suspect]
     Dosage: UNK UNK, UNK
     Route: 065
     Dates: start: 20140402, end: 20140416
  4. CUBICIN [Suspect]
     Dosage: UNK UNK, UNK
     Route: 065
     Dates: start: 20140402, end: 20140416
  5. ROCEPHIN [Concomitant]
     Indication: PRODUCT USED FOR UNKNOWN INDICATION
     Dosage: UNK UNK, UNK
     Route: 065
  6. FLUTICASONE [Concomitant]
     Indication: PRODUCT USED FOR UNKNOWN INDICATION
     Dosage: UNK UNK, UNK
     Route: 065
  7. IPRATROPIUM [Concomitant]
     Indication: PRODUCT USED FOR UNKNOWN INDICATION
     Dosage: UNK UNK, UNK
     Route: 065
  8. SPIRIVA [Concomitant]
     Indication: PRODUCT USED FOR UNKNOWN INDICATION
     Dosage: UNK UNK, UNK
     Route: 065
  9. ARESTAL                            /00384301/ [Concomitant]
     Indication: INSOMNIA
     Dosage: UNK UNK, UNK
     Route: 065
  10. RESTORIL                           /00054301/ [Concomitant]
     Indication: INSOMNIA
     Dosage: UNK UNK, UNK
     Route: 065
  11. ROSUVASTATIN [Concomitant]
     Indication: PRODUCT USED FOR UNKNOWN INDICATION
     Dosage: UNK UNK, UNK
     Route: 065
  12. PRAVASTATIN [Concomitant]
     Indication: PRODUCT USED FOR UNKNOWN INDICATION
     Dosage: UNK UNK, UNK
     Route: 065
  13. KCL [Concomitant]
     Indication: PRODUCT USED FOR UNKNOWN INDICATION
     Dosage: 20 MEQ, UNK
     Route: 065
  14. KCL [Concomitant]
     Dosage: 40 MEQ, UNK
  15. PENTOXIFILLINE [Concomitant]
     Indication: PRODUCT USED FOR UNKNOWN INDICATION
     Dosage: 400 MG, UNK
     Route: 065
  16. ONDANSETRON [Concomitant]
     Indication: PRODUCT USED FOR UNKNOWN INDICATION
     Dosage: UNK UNK, UNK
     Route: 065
  17. NITROGLYCERINE [Concomitant]
     Indication: PRODUCT USED FOR UNKNOWN INDICATION
     Dosage: UNK UNK, UNK
     Route: 048
  18. METPROLOL [Concomitant]
     Indication: HYPERTENSION
     Dosage: 50 MG, UNK
     Route: 065
  19. MELATONIN [Concomitant]
     Indication: PRODUCT USED FOR UNKNOWN INDICATION
     Dosage: UNK UNK, UNK
     Route: 065
  20. LOSARTAN HIDROCLOROTIAZIDA [Concomitant]
     Indication: PRODUCT USED FOR UNKNOWN INDICATION
     Dosage: UNK UNK, UNK
     Route: 065
  21. LANTUS [Concomitant]
     Indication: DIABETES MELLITUS
     Route: 065
  22. KETOROLAC [Concomitant]
     Indication: PRODUCT USED FOR UNKNOWN INDICATION
     Dosage: UNK, UNK
     Route: 048
  23. HYDRALAZINE [Concomitant]
     Indication: PRODUCT USED FOR UNKNOWN INDICATION
     Dosage: 25 MG, UNK
     Route: 048
  24. GLIPIZIDE [Concomitant]
     Indication: PRODUCT USED FOR UNKNOWN INDICATION
     Route: 065
  25. DICLOFENAC [Concomitant]
     Indication: PRODUCT USED FOR UNKNOWN INDICATION
     Dosage: UNK UNK, UNK
     Route: 065
  26. CALCIUM [Concomitant]
     Indication: PRODUCT USED FOR UNKNOWN INDICATION
     Dosage: UNK, UNK
     Route: 048
  27. ASPIRIN [Concomitant]
     Indication: PRODUCT USED FOR UNKNOWN INDICATION
     Dosage: 81 MG, UNK
     Route: 065
  28. AMLODIPINE [Concomitant]
     Indication: PRODUCT USED FOR UNKNOWN INDICATION
     Dosage: UNK UNK, UNK
     Route: 065
  29. ALLOPURINOL [Concomitant]
     Indication: PRODUCT USED FOR UNKNOWN INDICATION
     Dosage: UNK UNK, UNK
     Route: 065

REACTIONS (5)
  - Interstitial lung disease [Fatal]
  - Multi-organ failure [Fatal]
  - Acute respiratory failure [Unknown]
  - Pneumonitis [Unknown]
  - Renal failure [Unknown]
